FAERS Safety Report 17040441 (Version 1)
Quarter: 2019Q4

REPORT INFORMATION
  Report Type: Spontaneous
  Country: US (occurrence: US)
  Receive Date: 20191117
  Receipt Date: 20191117
  Transmission Date: 20200122
  Serious: No
  Sender: FDA-Public Use
  Company Number: US-TORRENT-00008809

PATIENT
  Sex: Male

DRUGS (1)
  1. LOSARTAN. [Suspect]
     Active Substance: LOSARTAN
     Indication: PRODUCT USED FOR UNKNOWN INDICATION
     Dosage: OVER 2 YEARS
     Dates: start: 2017

REACTIONS (3)
  - Large intestine polyp [Unknown]
  - Ill-defined disorder [Unknown]
  - Change of bowel habit [Unknown]

NARRATIVE: CASE EVENT DATE: 201807
